FAERS Safety Report 4847639-7 (Version None)
Quarter: 2005Q4

REPORT INFORMATION
  Report Type: 
  Country: None (occurrence: None)
  Receive Date: 20051205
  Receipt Date: 20051121
  Transmission Date: 20060501
  Serious: Yes (Life-Threatening)
  Sender: FDA-Public Use
  Company Number: 2005158170

PATIENT
  Age: 29 Year
  Sex: Female
  Weight: 64 kg

DRUGS (1)
  1. PREPIDIL GEL (DINOPROSTONE) [Suspect]
     Indication: LABOUR INDUCTION
     Dosage: 0.5 MG (0.5 MG, ONCE), VAGINAL
     Route: 067
     Dates: start: 20051013, end: 20051013

REACTIONS (3)
  - COAGULOPATHY [None]
  - HYPERTONIA [None]
  - LABOUR COMPLICATION [None]
